FAERS Safety Report 10904658 (Version 1)
Quarter: 2015Q1

REPORT INFORMATION
  Report Type: Spontaneous
  Country: US (occurrence: None)
  Receive Date: 20150113
  Receipt Date: 20150113
  Transmission Date: 20150721
  Serious: No
  Sender: FDA-Public Use
  Company Number: PHEH2014US020974

PATIENT
  Age: 33 Year
  Sex: Female

DRUGS (1)
  1. SIGNIFOR [Suspect]
     Active Substance: PASIREOTIDE
     Indication: PITUITARY-DEPENDENT CUSHING^S SYNDROME
     Route: 058
     Dates: start: 201403, end: 201408

REACTIONS (3)
  - Arthralgia [None]
  - Diarrhoea [None]
  - Pain in extremity [None]

NARRATIVE: CASE EVENT DATE: 201404
